FAERS Safety Report 20081441 (Version 6)
Quarter: 2021Q4

REPORT INFORMATION
  Report Type: Spontaneous
  Country: FR (occurrence: FR)
  Receive Date: 20211117
  Receipt Date: 20211220
  Transmission Date: 20220303
  Serious: Yes (Other)
  Sender: FDA-Public Use
  Company Number: FR-BAYER-2021A248184

PATIENT

DRUGS (4)
  1. EYLEA [Suspect]
     Active Substance: AFLIBERCEPT
     Indication: Neovascular age-related macular degeneration
     Dosage: LEFT, TOTAL OF 2 DOSES TO RIGHT EYE AD 5 DOSES TO LEFT EYE
     Route: 031
     Dates: start: 20210730, end: 20210730
  2. EYLEA [Suspect]
     Active Substance: AFLIBERCEPT
     Indication: Neovascular age-related macular degeneration
     Dosage: BOTH EYES
     Route: 031
     Dates: start: 20210910, end: 20210910
  3. EYLEA [Suspect]
     Active Substance: AFLIBERCEPT
     Indication: Detachment of retinal pigment epithelium
     Dosage: RIGHT EYE
     Route: 031
     Dates: start: 20211008, end: 20211008
  4. EYLEA [Suspect]
     Active Substance: AFLIBERCEPT
     Dosage: BOTH EYES RECEIVED SAME SYRINGE BATCH (2 INJECTIONS)
     Route: 031
     Dates: start: 20211105, end: 20211105

REACTIONS (5)
  - Retinal artery spasm [Recovered/Resolved]
  - Blindness [Recovered/Resolved]
  - Anxiety [Unknown]
  - Patient dissatisfaction with device [Unknown]
  - Device use issue [Unknown]

NARRATIVE: CASE EVENT DATE: 20211105
